FAERS Safety Report 6864161-7 (Version None)
Quarter: 2010Q3

REPORT INFORMATION
  Report Type: 
  Country: None (occurrence: None)
  Receive Date: 20100721
  Receipt Date: 20080318
  Transmission Date: 20110219
  Serious: No
  Sender: FDA-Public Use
  Company Number: US-PFIZER INC-2008024944

PATIENT
  Sex: Male
  Weight: 90.9 kg

DRUGS (3)
  1. CHANTIX [Suspect]
     Indication: SMOKING CESSATION THERAPY
     Route: 048
     Dates: start: 20080314
  2. LIPITOR [Concomitant]
     Route: 048
     Dates: start: 20070101
  3. HYZAAR [Concomitant]
     Route: 048
     Dates: start: 20070101

REACTIONS (6)
  - DIZZINESS [None]
  - NAUSEA [None]
  - ORAL HERPES [None]
  - PARAESTHESIA ORAL [None]
  - SKIN DISORDER [None]
  - SUNBURN [None]
